FAERS Safety Report 4308768-X (Version None)
Quarter: 2004Q1

REPORT INFORMATION
  Report Type: 
  Country: None (occurrence: None)
  Receive Date: 20040227
  Receipt Date: 20040227
  Transmission Date: 20041129
  Serious: Yes (Hospitalization)
  Sender: FDA-Public Use
  Company Number: None

PATIENT
  Age: 61 Year
  Sex: Male
  Weight: 86.5 kg

DRUGS (5)
  1. CISPLATIN [Suspect]
     Indication: OESOPHAGEAL CANCER METASTATIC
     Dosage: 30 MG/M2 ,D1 AND 8, IV
     Route: 042
     Dates: start: 20040210
  2. CISPLATIN [Suspect]
     Indication: OESOPHAGEAL CANCER METASTATIC
     Dosage: 30 MG/M2 ,D1 AND 8, IV
     Route: 042
     Dates: start: 20040217
  3. IRINOTECAN [Suspect]
     Indication: OESOPHAGEAL CANCER METASTATIC
     Dosage: 65 MG /M2 D1 AND 8 IV
     Route: 042
     Dates: start: 20040210
  4. IRINOTECAN [Suspect]
     Indication: OESOPHAGEAL CANCER METASTATIC
     Dosage: 65 MG /M2 D1 AND 8 IV
     Route: 042
     Dates: start: 20040217
  5. FLUOROURACIL [Suspect]
     Indication: OESOPHAGEAL CANCER METASTATIC
     Dosage: 260 MG/M2 , CONT INF , IV DAYS 1-14
     Dates: start: 20040210, end: 20040224

REACTIONS (2)
  - DIARRHOEA [None]
  - OVERDOSE [None]
